FAERS Safety Report 13699433 (Version 4)
Quarter: 2017Q3

REPORT INFORMATION
  Report Type: Spontaneous
  Country: JP (occurrence: JP)
  Receive Date: 20170628
  Receipt Date: 20170928
  Transmission Date: 20171127
  Serious: Yes (Other)
  Sender: FDA-Public Use
  Company Number: JP-AMGEN-JPNSP2017098671

PATIENT
  Age: 74 Year
  Sex: Female

DRUGS (15)
  1. 5-FU                               /00098801/ [Concomitant]
     Active Substance: FLUOROURACIL
     Dosage: 600 MG, UNK
     Route: 041
     Dates: start: 20170405
  2. G-LASTA [Suspect]
     Active Substance: PEGFILGRASTIM
     Indication: COLONY STIMULATING FACTOR PROPHYLAXIS
     Dosage: UNKNOWN
     Route: 058
     Dates: start: 20170427, end: 20170617
  3. FARMORUBICIN [Concomitant]
     Active Substance: EPIRUBICIN HYDROCHLORIDE
     Dosage: 90 MG, UNK
     Route: 041
     Dates: start: 20140405
  4. FARMORUBICIN [Concomitant]
     Active Substance: EPIRUBICIN HYDROCHLORIDE
     Dosage: 90 MG, UNK
     Route: 041
     Dates: start: 20140426
  5. ENDOXAN                            /00021101/ [Concomitant]
     Active Substance: CYCLOPHOSPHAMIDE
     Indication: BREAST CANCER
     Dosage: 600 MG, UNK
     Route: 041
     Dates: start: 20170315
  6. 5-FU                               /00098801/ [Concomitant]
     Active Substance: FLUOROURACIL
     Dosage: 600 MG, UNK
     Route: 041
     Dates: start: 20170614
  7. FARMORUBICIN [Concomitant]
     Active Substance: EPIRUBICIN HYDROCHLORIDE
     Indication: BREAST CANCER
     Dosage: 90 MG, UNK
     Route: 041
     Dates: start: 20170315
  8. FLOMOX                             /01418603/ [Concomitant]
     Active Substance: CEFCAPENE PIVOXIL HYDROCHLORIDE HYDRATE
     Indication: FEBRILE NEUTROPENIA
     Dosage: UNK
     Route: 048
     Dates: start: 20170417
  9. NEUTROGIN [Concomitant]
     Active Substance: LENOGRASTIM
     Indication: FEBRILE NEUTROPENIA
     Dosage: UNK
     Route: 065
     Dates: start: 20170417
  10. 5-FU                               /00098801/ [Concomitant]
     Active Substance: FLUOROURACIL
     Dosage: 600 MG, UNK
     Route: 041
     Dates: start: 20170426
  11. FARMORUBICIN [Concomitant]
     Active Substance: EPIRUBICIN HYDROCHLORIDE
     Dosage: 90 MG, UNK
     Route: 041
     Dates: start: 20140614
  12. ENDOXAN                            /00021101/ [Concomitant]
     Active Substance: CYCLOPHOSPHAMIDE
     Dosage: 600 MG, UNK
     Route: 041
     Dates: start: 20170614
  13. ENDOXAN                            /00021101/ [Concomitant]
     Active Substance: CYCLOPHOSPHAMIDE
     Dosage: 600 MG, UNK
     Route: 041
     Dates: start: 20170426
  14. 5-FU                               /00098801/ [Concomitant]
     Active Substance: FLUOROURACIL
     Indication: BREAST CANCER
     Dosage: 600 MG, UNK
     Route: 041
     Dates: start: 20170315
  15. ENDOXAN                            /00021101/ [Concomitant]
     Active Substance: CYCLOPHOSPHAMIDE
     Dosage: 600 MG, UNK
     Route: 041
     Dates: start: 20170405

REACTIONS (4)
  - Pancytopenia [Recovered/Resolved]
  - Pancytopenia [Recovered/Resolved]
  - Platelet count decreased [Recovered/Resolved]
  - Thrombocytopenia [Recovered/Resolved]

NARRATIVE: CASE EVENT DATE: 20170502
